FAERS Safety Report 8261580-1 (Version None)
Quarter: 2012Q2

REPORT INFORMATION
  Report Type: 
  Country: None (occurrence: None)
  Receive Date: 20120402
  Receipt Date: 20120319
  Transmission Date: 20120825
  Serious: Yes (Disabling, Other)
  Sender: FDA-Public Use
  Company Number: 2012AP000791

PATIENT
  Sex: Female

DRUGS (6)
  1. ALENDRONATE SODIUM [Suspect]
     Indication: OSTEOPOROSIS
     Dates: start: 20100401
  2. ALENDRONATE SODIUM [Suspect]
     Indication: OSTEOPOROSIS
     Dates: start: 20100201, end: 20100301
  3. ALENDRONATE SODIUM [Suspect]
     Indication: OSTEOPOROSIS
     Dates: start: 20080201, end: 20080801
  4. ALENDRONATE SODIUM [Suspect]
     Indication: OSTEOPOROSIS
     Dates: start: 20091101, end: 20100101
  5. ALENDRONATE SODIUM [Suspect]
     Indication: OSTEOPOROSIS
     Dates: start: 20011201, end: 20080201
  6. ALENDRONATE SODIUM [Suspect]
     Indication: OSTEOPOROSIS
     Dates: start: 20080901, end: 20091001

REACTIONS (10)
  - LOW TURNOVER OSTEOPATHY [None]
  - OSTEOGENESIS IMPERFECTA [None]
  - FEAR OF DISEASE [None]
  - ANXIETY [None]
  - TOXICITY TO VARIOUS AGENTS [None]
  - ANHEDONIA [None]
  - TERMINAL STATE [None]
  - CONDITION AGGRAVATED [None]
  - EMOTIONAL DISTRESS [None]
  - FEMUR FRACTURE [None]
